FAERS Safety Report 22598884 (Version 1)
Quarter: 2023Q2

REPORT INFORMATION
  Report Type: Spontaneous
  Country: CN (occurrence: CN)
  Receive Date: 20230614
  Receipt Date: 20230614
  Transmission Date: 20230722
  Serious: Yes (Death, Hospitalization)
  Sender: FDA-Public Use
  Company Number: CN-STERISCIENCE B.V.-2023-ST-001462

PATIENT
  Age: 77 Year
  Sex: Male

DRUGS (17)
  1. PIPERACILLIN SODIUM\TAZOBACTAM SODIUM [Suspect]
     Active Substance: PIPERACILLIN SODIUM\TAZOBACTAM SODIUM
     Indication: Toxicity to various agents
     Dosage: UNK
     Route: 042
     Dates: start: 202009
  2. PIPERACILLIN SODIUM\TAZOBACTAM SODIUM [Suspect]
     Active Substance: PIPERACILLIN SODIUM\TAZOBACTAM SODIUM
     Dosage: 4.5 MILLIGRAM, DRIP, INJECTION
     Route: 042
  3. LEUCOVORIN CALCIUM [Suspect]
     Active Substance: LEUCOVORIN CALCIUM
     Indication: Toxicity to various agents
     Dosage: UNK
     Route: 042
     Dates: start: 202009
  4. FOLIC ACID [Suspect]
     Active Substance: FOLIC ACID
     Indication: Toxicity to various agents
     Dosage: UNK
     Route: 065
     Dates: start: 202009
  5. GLUTATHIONE [Suspect]
     Active Substance: GLUTATHIONE
     Indication: Toxicity to various agents
     Dosage: UNK
     Route: 065
     Dates: start: 202009
  6. FILGRASTIM [Suspect]
     Active Substance: FILGRASTIM
     Indication: Toxicity to various agents
     Dosage: UNK
     Route: 058
     Dates: start: 202009
  7. CASPOFUNGIN [Suspect]
     Active Substance: CASPOFUNGIN
     Indication: Antifungal treatment
     Dosage: 70 MILLIGRAM, DRIP; FIRST DOSE
     Route: 042
     Dates: start: 202009
  8. CASPOFUNGIN [Suspect]
     Active Substance: CASPOFUNGIN
     Dosage: 50 MILLIGRAM, DRIP
     Route: 042
     Dates: start: 202009
  9. NOREPINEPHRINE [Suspect]
     Active Substance: NOREPINEPHRINE
     Indication: Toxicity to various agents
     Dosage: 4 MILLIGRAM, ADMINISTERED VIA MICROPUMP
     Route: 065
     Dates: start: 202009
  10. AMLODIPINE BESYLATE [Concomitant]
     Active Substance: AMLODIPINE BESYLATE
     Indication: Hypertension
     Dosage: UNK
     Route: 065
  11. METFORMIN [Concomitant]
     Active Substance: METFORMIN HYDROCHLORIDE
     Indication: Diabetes mellitus
     Dosage: UNK
     Route: 065
  12. ACARBOSE [Concomitant]
     Active Substance: ACARBOSE
     Indication: Diabetes mellitus
     Dosage: UNK
     Route: 065
  13. METHOTREXATE [Concomitant]
     Active Substance: METHOTREXATE
     Indication: Product used for unknown indication
     Dosage: 10 MILLIGRAM, QW
     Route: 065
     Dates: start: 202009
  14. METHOTREXATE [Concomitant]
     Active Substance: METHOTREXATE
     Dosage: 5 MILLIGRAM, BID
     Route: 065
     Dates: start: 202009
  15. METHOTREXATE [Concomitant]
     Active Substance: METHOTREXATE
     Dosage: 35MG 7 TIMES IN TOTAL (AFTER 4 DAYS OF TREATMENT)
     Route: 065
     Dates: start: 202009
  16. HERBALS [Concomitant]
     Active Substance: HERBALS
     Indication: Product used for unknown indication
     Dosage: UNK
     Route: 065
     Dates: start: 202009
  17. METHYLPREDNISOLONE [Concomitant]
     Active Substance: METHYLPREDNISOLONE
     Indication: Product used for unknown indication
     Dosage: UNK
     Route: 065
     Dates: start: 202009

REACTIONS (1)
  - Drug ineffective for unapproved indication [Fatal]

NARRATIVE: CASE EVENT DATE: 20200901
